FAERS Safety Report 7955241-3 (Version None)
Quarter: 2011Q4

REPORT INFORMATION
  Report Type: 
  Country: None (occurrence: None)
  Receive Date: 20111202
  Receipt Date: 20111123
  Transmission Date: 20120403
  Serious: Yes (Other)
  Sender: FDA-Public Use
  Company Number: US-JNJFOC-20111111531

PATIENT
  Sex: Female

DRUGS (5)
  1. CHOLESTEROL MEDICATION [Concomitant]
     Indication: BLOOD CHOLESTEROL ABNORMAL
     Route: 065
  2. ROGAINE [Suspect]
     Route: 061
  3. ANTI-ARRHYTHMIC [Concomitant]
     Indication: ATRIAL FIBRILLATION
     Route: 065
  4. ROGAINE [Suspect]
     Indication: ALOPECIA
     Route: 061
  5. ANTIHYPERTENSIVE [Concomitant]
     Indication: HYPERTENSION
     Route: 065

REACTIONS (2)
  - CAROTID ARTERY OCCLUSION [None]
  - TRANSIENT ISCHAEMIC ATTACK [None]
